FAERS Safety Report 5848582-7 (Version None)
Quarter: 2008Q3

REPORT INFORMATION
  Report Type: 
  Country: None (occurrence: None)
  Receive Date: 20080818
  Receipt Date: 20080724
  Transmission Date: 20090109
  Serious: Yes (Life-Threatening, Hospitalization)
  Sender: FDA-Public Use
  Company Number: NL-ASTRAZENECA-2008AC02188

PATIENT
  Age: 51 Year
  Sex: Female
  Weight: 55 kg

DRUGS (6)
  1. LOSEC MUPS [Suspect]
     Indication: GASTROINTESTINAL DISORDER
     Route: 048
     Dates: start: 20080626
  2. ZYPREXA [Suspect]
     Indication: SCHIZOPHRENIA, PARANOID TYPE
     Route: 048
     Dates: start: 20080617, end: 20080709
  3. PREDNISON [Suspect]
     Indication: GASTROINTESTINAL DISORDER
     Route: 048
     Dates: start: 20080626
  4. LORAZEPAM [Concomitant]
     Route: 048
     Dates: start: 20080618
  5. FERROFUMARAAT [Concomitant]
     Route: 048
     Dates: start: 20080618
  6. MESALAMINE [Concomitant]
     Route: 048
     Dates: start: 20080619

REACTIONS (3)
  - AMAUROSIS FUGAX [None]
  - DEEP VEIN THROMBOSIS [None]
  - PERIPHERAL ARTERIAL OCCLUSIVE DISEASE [None]
